FAERS Safety Report 8445575-0 (Version None)
Quarter: 2012Q2

REPORT INFORMATION
  Report Type: 
  Country: None (occurrence: None)
  Receive Date: 20120618
  Receipt Date: 20120308
  Transmission Date: 20120825
  Serious: No
  Sender: FDA-Public Use
  Company Number: US-MYLANLABS-2012S1005456

PATIENT
  Sex: Male

DRUGS (1)
  1. LEVOFLOXACIN [Suspect]
     Indication: PROSTATE INFECTION
     Route: 048
     Dates: start: 20120210, end: 20120213

REACTIONS (2)
  - BURNING SENSATION [None]
  - ARTHRALGIA [None]
